FAERS Safety Report 8383336-1 (Version None)
Quarter: 2012Q2

REPORT INFORMATION
  Report Type: 
  Country: None (occurrence: None)
  Receive Date: 20120523
  Receipt Date: 20120507
  Transmission Date: 20120825
  Serious: Yes (Life-Threatening, Other)
  Sender: FDA-Public Use
  Company Number: 2012SGN00179

PATIENT
  Sex: Female

DRUGS (1)
  1. ADCETRIS [Suspect]
     Indication: PRODUCT USED FOR UNKNOWN INDICATION

REACTIONS (4)
  - NOCARDIA TEST POSITIVE [None]
  - PNEUMONIA [None]
  - SEPTIC SHOCK [None]
  - RESPIRATORY FAILURE [None]
